FAERS Safety Report 19935058 (Version 1)
Quarter: 2021Q4

REPORT INFORMATION
  Report Type: Spontaneous
  Country: US (occurrence: US)
  Receive Date: 20211008
  Receipt Date: 20211008
  Transmission Date: 20220303
  Serious: No
  Sender: FDA-Public Use
  Company Number: US-MYLANLABS-2021M1067339

PATIENT
  Age: 46 Year
  Sex: Female
  Weight: 68 kg

DRUGS (2)
  1. FENTANYL TRANSDERMAL SYSTEM [Suspect]
     Active Substance: FENTANYL
     Indication: Back pain
     Dosage: 25 MICROGRAM, QH 1 PATCH WORN FOR UP TO 48 HOURS (EVERY 72 HOURS)
     Route: 062
     Dates: start: 20210926
  2. FENTANYL TRANSDERMAL SYSTEM [Suspect]
     Active Substance: FENTANYL
     Indication: Arthralgia
     Dosage: 25 MICROGRAM, QH 1 PATCH WORN FOR UP TO 48 HOURS (EVERY 72 HOURS)
     Route: 062

REACTIONS (3)
  - Product packaging quantity issue [Not Recovered/Not Resolved]
  - Product adhesion issue [Recovered/Resolved]
  - Wrong technique in product usage process [Unknown]

NARRATIVE: CASE EVENT DATE: 20210926
